FAERS Safety Report 10501695 (Version 1)
Quarter: 2014Q4

REPORT INFORMATION
  Report Type: Spontaneous
  Country: US (occurrence: US)
  Receive Date: 20141007
  Receipt Date: 20141007
  Transmission Date: 20150528
  Serious: Yes (Hospitalization, Other)
  Sender: FDA-Public Use
  Company Number: US-RECKITT BENCKISER PHARMACEUTICAL, INC-RB-72084-2014

PATIENT
  Age: 54 Year
  Sex: Male

DRUGS (2)
  1. SUBOXONE [Suspect]
     Active Substance: BUPRENORPHINE HYDROCHLORIDE\NALOXONE HYDROCHLORIDE
     Indication: DRUG DEPENDENCE
     Dosage: 16-24 MG DAILY FOR ABOUT ONE YEAR
     Route: 060
     Dates: start: 2011, end: 201208
  2. SUBOXONE [Suspect]
     Active Substance: BUPRENORPHINE HYDROCHLORIDE\NALOXONE HYDROCHLORIDE
     Dosage: 10-12 MG DAILY OF THE FILM, CUTS IT TO ACHIEVE DOSING
     Route: 060
     Dates: start: 2012

REACTIONS (7)
  - Loss of consciousness [Recovered/Resolved]
  - Hip fracture [Recovered/Resolved]
  - Gait disturbance [Not Recovered/Not Resolved]
  - Road traffic accident [Recovered/Resolved]
  - Wrong technique in drug usage process [Not Recovered/Not Resolved]
  - Diabetes mellitus [Not Recovered/Not Resolved]
  - Arthralgia [Not Recovered/Not Resolved]

NARRATIVE: CASE EVENT DATE: 201208
